FAERS Safety Report 10377922 (Version 1)
Quarter: 2014Q3

REPORT INFORMATION
  Report Type: Spontaneous
  Country: BR (occurrence: BR)
  Receive Date: 20140812
  Receipt Date: 20140812
  Transmission Date: 20150326
  Serious: Yes (Hospitalization)
  Sender: FDA-Public Use
  Company Number: BR-SHIRE-BR201404713

PATIENT
  Age: 15 Year
  Sex: Female

DRUGS (1)
  1. VENVANSE [Suspect]
     Active Substance: LISDEXAMFETAMINE DIMESYLATE
     Indication: PRODUCT USED FOR UNKNOWN INDICATION
     Dosage: 50 MG, ONE DOSE
     Route: 048
     Dates: start: 20140806, end: 20140806

REACTIONS (8)
  - Hallucination [Unknown]
  - Drug diversion [Unknown]
  - Confusional state [Unknown]
  - Intentional product misuse [Unknown]
  - Fatigue [Unknown]
  - Agitation [Unknown]
  - Respiratory rate increased [Unknown]
  - Tremor [Unknown]

NARRATIVE: CASE EVENT DATE: 20140806
